FAERS Safety Report 16401764 (Version 1)
Quarter: 2019Q2

REPORT INFORMATION
  Report Type: Spontaneous
  Country: BR (occurrence: BR)
  Receive Date: 20190606
  Receipt Date: 20190606
  Transmission Date: 20190711
  Serious: Yes (Other)
  Sender: FDA-Public Use
  Company Number: BR-AMGEN-BRASP2019089077

PATIENT
  Age: 84 Year
  Sex: Male
  Weight: 66 kg

DRUGS (12)
  1. LEUCOVORINE [Suspect]
     Active Substance: LEUCOVORIN
     Indication: ADENOCARCINOMA OF COLON
  2. 5-FU [FLUOROURACIL] [Suspect]
     Active Substance: FLUOROURACIL
     Indication: RECTAL ADENOCARCINOMA
     Dosage: UNK
     Route: 065
     Dates: start: 20170707
  3. OXALIPLATIN. [Suspect]
     Active Substance: OXALIPLATIN
     Indication: RECTAL ADENOCARCINOMA
     Dosage: UNK
     Route: 065
     Dates: start: 2018
  4. VECTIBIX [Suspect]
     Active Substance: PANITUMUMAB
     Indication: ADENOCARCINOMA OF COLON
  5. 5-FU [FLUOROURACIL] [Suspect]
     Active Substance: FLUOROURACIL
     Indication: ADENOCARCINOMA OF COLON
  6. GRANULOKINE [Suspect]
     Active Substance: FILGRASTIM
     Indication: PROPHYLAXIS
  7. VECTIBIX [Suspect]
     Active Substance: PANITUMUMAB
     Indication: RECTAL ADENOCARCINOMA
     Dosage: 6 MILLIGRAM/KILOGRAM, EVERY 15 DAYS
     Route: 065
     Dates: start: 201904
  8. LEUCOVORINE [Suspect]
     Active Substance: LEUCOVORIN
     Indication: RECTAL ADENOCARCINOMA
     Dosage: UNK
     Route: 065
     Dates: start: 20170707
  9. LOSARTAN. [Concomitant]
     Active Substance: LOSARTAN
     Indication: HYPERTENSION
     Dosage: 50 MILLIGRAM, QD
  10. MERITOR [Concomitant]
     Active Substance: GLIMEPIRIDE\METFORMIN
     Indication: DIABETIC NEUROPATHY
     Dosage: UNK
  11. GRANULOKINE [Suspect]
     Active Substance: FILGRASTIM
     Indication: NEUTROPENIA
     Dosage: UNK (5 VIALS)
     Route: 065
     Dates: start: 2017
  12. OXALIPLATIN. [Suspect]
     Active Substance: OXALIPLATIN
     Indication: ADENOCARCINOMA OF COLON

REACTIONS (9)
  - Systemic toxicity [Unknown]
  - Haemoptysis [Unknown]
  - Diverticulum intestinal [Unknown]
  - Cough [Unknown]
  - Proctitis [Unknown]
  - Dermatitis [Unknown]
  - Haematochezia [Unknown]
  - Back pain [Unknown]
  - Malignant neoplasm progression [Unknown]

NARRATIVE: CASE EVENT DATE: 2018
